FAERS Safety Report 8345393-8 (Version None)
Quarter: 2012Q2

REPORT INFORMATION
  Report Type: 
  Country: None (occurrence: None)
  Receive Date: 20120508
  Receipt Date: 20120504
  Transmission Date: 20120825
  Serious: Yes (Other)
  Sender: FDA-Public Use
  Company Number: GB-PFIZER INC-2012109602

PATIENT
  Age: 54 Year
  Sex: Male

DRUGS (1)
  1. VARENICLINE TARTRATE [Suspect]
     Indication: SMOKING CESSATION THERAPY
     Dosage: UNK
     Dates: start: 20100301

REACTIONS (4)
  - COGNITIVE DISORDER [None]
  - PERSONALITY DISORDER [None]
  - TOURETTE'S DISORDER [None]
  - LOSS OF CONSCIOUSNESS [None]
